FAERS Safety Report 4873559-8 (Version None)
Quarter: 2006Q1

REPORT INFORMATION
  Report Type: 
  Country: None (occurrence: None)
  Receive Date: 20060105
  Receipt Date: 20050509
  Transmission Date: 20060701
  Serious: Yes (Hospitalization)
  Sender: FDA-Public Use
  Company Number: US-MERCK-0505USA01116

PATIENT
  Age: 43 Year
  Sex: Male
  Weight: 114 kg

DRUGS (2)
  1. VIOXX [Suspect]
     Indication: INFLAMMATION
     Route: 048
     Dates: start: 19991101, end: 20041001
  2. VIOXX [Suspect]
     Indication: RIB FRACTURE
     Route: 048
     Dates: start: 19991101, end: 20041001

REACTIONS (4)
  - CARDIAC FAILURE CONGESTIVE [None]
  - DEPRESSION [None]
  - DIZZINESS [None]
  - MYOCARDIAL INFARCTION [None]
